FAERS Safety Report 7275528-X (Version None)
Quarter: 2011Q1

REPORT INFORMATION
  Report Type: 
  Country: None (occurrence: None)
  Receive Date: 20110204
  Receipt Date: 20110131
  Transmission Date: 20110831
  Serious: Yes (Hospitalization)
  Sender: FDA-Public Use
  Company Number: US-BRISTOL-MYERS SQUIBB COMPANY-15521750

PATIENT
  Age: 69 Year
  Sex: Female
  Weight: 66 kg

DRUGS (15)
  1. VALACYCLOVIR [Concomitant]
     Indication: HERPES ZOSTER
     Route: 048
  2. TEMAZEPAM [Concomitant]
     Dosage: QHS PRN
  3. VITAMIN E [Concomitant]
     Indication: VITAMIN SUPPLEMENTATION
  4. CELEXA [Concomitant]
     Indication: DEPRESSION
  5. COLACE [Concomitant]
  6. ZOFRAN [Concomitant]
     Dosage: ODT
  7. CYTOXAN [Suspect]
     Indication: BREAST CANCER
     Dosage: RECENT DOSE:24JAN11
     Route: 042
     Dates: start: 20110124
  8. NEURONTIN [Concomitant]
     Indication: FIBROMYALGIA
     Dosage: QHS PRN
  9. EPIRUBICIN [Suspect]
     Indication: BREAST CANCER
     Dosage: RECENT DOSE:24JAN11
     Route: 042
     Dates: start: 20110124
  10. CALCIUM + VITAMIN D [Concomitant]
  11. ASPIRIN [Concomitant]
  12. MULTIVITAMIN [Concomitant]
     Indication: VITAMIN SUPPLEMENTATION
  13. NEUPOGEN [Concomitant]
  14. FISH OIL [Concomitant]
     Indication: VITAMIN SUPPLEMENTATION
  15. HYDROCODONE WITH TYLENOL [Concomitant]
     Indication: PAIN
     Dosage: 1DF=5/325MG

REACTIONS (1)
  - DEHYDRATION [None]
